FAERS Safety Report 20744366 (Version 1)
Quarter: 2022Q2

REPORT INFORMATION
  Report Type: Spontaneous
  Country: None (occurrence: FR)
  Receive Date: 20220425
  Receipt Date: 20220425
  Transmission Date: 20220721
  Serious: Yes (Other)
  Sender: FDA-Public Use
  Company Number: FR-AKCEA THERAPEUTICS, INC.-2022IS003292

PATIENT
  Age: 64 Year
  Sex: Male

DRUGS (6)
  1. TEGSEDI [Suspect]
     Active Substance: INOTERSEN SODIUM
     Indication: Hereditary neuropathic amyloidosis
     Route: 065
     Dates: start: 202110
  2. DEVICE [Suspect]
     Active Substance: DEVICE
  3. TEGSEDI [Suspect]
     Active Substance: INOTERSEN SODIUM
     Route: 058
     Dates: start: 202112
  4. TAFAMIDIS [Concomitant]
     Active Substance: TAFAMIDIS
     Route: 065
  5. PATISIRAN [Concomitant]
     Active Substance: PATISIRAN
     Route: 065
     Dates: start: 201808, end: 2021
  6. CORDARONE [Concomitant]
     Active Substance: AMIODARONE HYDROCHLORIDE
     Route: 065

REACTIONS (2)
  - Femur fracture [Unknown]
  - Traumatic haematoma [Unknown]
